FAERS Safety Report 8267828-1 (Version None)
Quarter: 2012Q2

REPORT INFORMATION
  Report Type: 
  Country: None (occurrence: None)
  Receive Date: 20120405
  Receipt Date: 20120405
  Transmission Date: 20120825
  Serious: No
  Sender: FDA-Public Use
  Company Number: None

PATIENT
  Age: 61 Year
  Sex: Male
  Weight: 95.4 kg

DRUGS (1)
  1. PENICILLIN [Suspect]
     Dosage: 500 MG QID PO
     Route: 048
     Dates: start: 20120201, end: 20120203

REACTIONS (2)
  - PRURITUS [None]
  - RASH GENERALISED [None]
